FAERS Safety Report 22857903 (Version 2)
Quarter: 2025Q1

REPORT INFORMATION
  Report Type: Spontaneous
  Country: US (occurrence: US)
  Receive Date: 20230823
  Receipt Date: 20250307
  Transmission Date: 20250408
  Serious: Yes (Other)
  Sender: JOHNSON AND JOHNSON
  Company Number: US-JNJFOC-20230837870

PATIENT
  Age: 69 Year
  Sex: Male

DRUGS (10)
  1. ERLEADA [Suspect]
     Active Substance: APALUTAMIDE
     Indication: Prostate cancer
     Route: 048
  2. ORGOVYX [Suspect]
     Active Substance: RELUGOLIX
     Indication: Product used for unknown indication
     Route: 065
  3. ORGOVYX [Suspect]
     Active Substance: RELUGOLIX
     Route: 048
     Dates: start: 202307, end: 202307
  4. ORGOVYX [Suspect]
     Active Substance: RELUGOLIX
     Route: 048
     Dates: start: 202307, end: 20231018
  5. ORGOVYX [Suspect]
     Active Substance: RELUGOLIX
     Route: 048
  6. LISINOPRIL [Concomitant]
     Active Substance: LISINOPRIL
     Indication: Product used for unknown indication
     Route: 065
  7. ASPIRIN [Concomitant]
     Active Substance: ASPIRIN
     Indication: Product used for unknown indication
     Route: 065
  8. DIETARY SUPPLEMENT\UBIDECARENONE [Concomitant]
     Active Substance: DIETARY SUPPLEMENT\UBIDECARENONE
  9. KRILL OIL [Concomitant]
     Active Substance: DIETARY SUPPLEMENT\KRILL OIL
  10. VITAMINS NOS [Concomitant]
     Active Substance: VITAMINS

REACTIONS (22)
  - Blood pressure increased [Recovered/Resolved]
  - Muscle atrophy [Unknown]
  - Epistaxis [Unknown]
  - Restlessness [Unknown]
  - Dizziness postural [Unknown]
  - Chest pain [Unknown]
  - Dyspnoea [Unknown]
  - Night sweats [Unknown]
  - Headache [Not Recovered/Not Resolved]
  - Rash [Recovered/Resolved]
  - Gynaecomastia [Unknown]
  - Insomnia [Not Recovered/Not Resolved]
  - Asthenia [Unknown]
  - Anaemia [Unknown]
  - Hot flush [Not Recovered/Not Resolved]
  - Arthralgia [Unknown]
  - Fatigue [Unknown]
  - Incorrect dosage administered [Not Recovered/Not Resolved]
  - Product dose omission issue [Unknown]
  - Hyperhidrosis [Not Recovered/Not Resolved]
  - Erythema [Unknown]
  - Weight decreased [Unknown]

NARRATIVE: CASE EVENT DATE: 20230701
